FAERS Safety Report 22362272 (Version 1)
Quarter: 2023Q2

REPORT INFORMATION
  Report Type: Spontaneous
  Country: CN (occurrence: CN)
  Receive Date: 20230524
  Receipt Date: 20230524
  Transmission Date: 20230721
  Serious: Yes (Other)
  Sender: FDA-Public Use
  Company Number: CN-PFIZER INC-PV202300090500

PATIENT
  Age: 76 Year
  Sex: Male
  Weight: 35 kg

DRUGS (2)
  1. VFEND [Suspect]
     Active Substance: VORICONAZOLE
     Indication: Bronchiectasis
     Dosage: 0.2 G, 2X/DAY
     Route: 048
     Dates: start: 20230510, end: 20230512
  2. VFEND [Suspect]
     Active Substance: VORICONAZOLE
     Indication: Infection

REACTIONS (7)
  - Dysphoria [Recovering/Resolving]
  - Agitation [Recovering/Resolving]
  - Disorganised speech [Recovering/Resolving]
  - Mental disorder [Recovering/Resolving]
  - Screaming [Recovering/Resolving]
  - Dysarthria [Recovering/Resolving]
  - Off label use [Unknown]

NARRATIVE: CASE EVENT DATE: 20230510
